FAERS Safety Report 14514456 (Version 2)
Quarter: 2018Q2

REPORT INFORMATION
  Report Type: Spontaneous
  Country: US (occurrence: US)
  Receive Date: 20180209
  Receipt Date: 20180416
  Transmission Date: 20180711
  Serious: Yes (Disabling, Other)
  Sender: FDA-Public Use
  Company Number: US-REGENERON PHARMACEUTICALS, INC.-2018-13155

PATIENT

DRUGS (8)
  1. IRBESARTAN HCTZ [Concomitant]
     Active Substance: HYDROCHLOROTHIAZIDE\IRBESARTAN
     Indication: PRODUCT USED FOR UNKNOWN INDICATION
  2. METFORMIN [Concomitant]
     Active Substance: METFORMIN HYDROCHLORIDE
     Indication: PRODUCT USED FOR UNKNOWN INDICATION
     Dosage: UNK MG, UNK
  3. CRESTOR [Concomitant]
     Active Substance: ROSUVASTATIN CALCIUM
     Indication: PRODUCT USED FOR UNKNOWN INDICATION
  4. EYLEA [Suspect]
     Active Substance: AFLIBERCEPT
     Dosage: 2MG (0.05 ML),  LEFT EYE, EVERY 7-8 WEEKS
     Route: 031
     Dates: start: 201712, end: 201712
  5. SERTRALINE [Concomitant]
     Active Substance: SERTRALINE HYDROCHLORIDE
     Indication: PRODUCT USED FOR UNKNOWN INDICATION
  6. EXEMESTANE. [Concomitant]
     Active Substance: EXEMESTANE
     Indication: PRODUCT USED FOR UNKNOWN INDICATION
  7. EYLEA [Suspect]
     Active Substance: AFLIBERCEPT
     Indication: MACULAR DEGENERATION
     Dosage: 2MG (0.05 ML),  LEFT EYE, EVERY 7-8 WEEKS
     Route: 031
     Dates: start: 20161209, end: 20180125
  8. EYLEA [Suspect]
     Active Substance: AFLIBERCEPT
     Dosage: 2MG (0.05 ML),  LEFT EYE, EVERY 7-8 WEEKS
     Route: 031
     Dates: start: 20180125, end: 20180125

REACTIONS (8)
  - Eye infection intraocular [Not Recovered/Not Resolved]
  - Eye inflammation [Unknown]
  - Vitreous floaters [Not Recovered/Not Resolved]
  - Blindness transient [Not Recovered/Not Resolved]
  - Uveitis [Not Recovered/Not Resolved]
  - Blindness unilateral [Unknown]
  - Endophthalmitis [Not Recovered/Not Resolved]
  - Headache [Recovered/Resolved]

NARRATIVE: CASE EVENT DATE: 201712
